FAERS Safety Report 8558844-0 (Version None)
Quarter: 2012Q3

REPORT INFORMATION
  Report Type: 
  Country: None (occurrence: None)
  Receive Date: 20120801
  Receipt Date: 20110125
  Transmission Date: 20120928
  Serious: Yes (Death)
  Sender: FDA-Public Use
  Company Number: GB-BAYER-2011-001985

PATIENT
  Age: 25 Year
  Sex: Male

DRUGS (16)
  1. RITONAVIR [Suspect]
     Indication: HIV INFECTION
  2. EFAVIRENZ [Concomitant]
  3. PROTHIONAMIDE [Concomitant]
     Indication: TUBERCULOSIS
  4. ONDANSETRON [Suspect]
  5. CYCLOSERINE [Concomitant]
     Indication: TUBERCULOSIS
  6. ETHAMBUTOL HYDROCHLORIDE [Concomitant]
     Indication: TUBERCULOSIS
  7. LINEZOLID [Concomitant]
     Indication: TUBERCULOSIS
  8. TRUVADA [Concomitant]
  9. VALGANCICLOVIR [Concomitant]
  10. MOXIFLOXACIN [Suspect]
     Indication: TUBERCULOSIS
  11. AMIKACIN [Concomitant]
     Indication: TUBERCULOSIS
     Route: 042
  12. PYRAZINAMIDE [Concomitant]
     Indication: TUBERCULOSIS
  13. FLUCONAZOLE [Suspect]
     Indication: ORAL CANDIDIASIS
  14. HEPARIN [Concomitant]
  15. DARUNAVIR ETHANOLATE [Suspect]
     Indication: HIV INFECTION
  16. CLOFAZIMINE [Concomitant]

REACTIONS (1)
  - ARRHYTHMIA [None]
